FAERS Safety Report 11521983 (Version 1)
Quarter: 2015Q3

REPORT INFORMATION
  Report Type: Spontaneous
  Country: US (occurrence: US)
  Receive Date: 20150903
  Receipt Date: 20150903
  Transmission Date: 20151125
  Serious: No
  Sender: FDA-Public Use
  Company Number: US-ELI_LILLY_AND_COMPANY-US201301002499

PATIENT
  Age: 68 Year
  Sex: Female

DRUGS (8)
  1. GLIMEPIRIDE. [Concomitant]
     Active Substance: GLIMEPIRIDE
  2. METFORMIN [Concomitant]
     Active Substance: METFORMIN HYDROCHLORIDE
  3. CYMBALTA [Suspect]
     Active Substance: DULOXETINE HYDROCHLORIDE
     Indication: DEPRESSION
     Dosage: UNK
     Dates: start: 20121019
  4. LIVALO [Concomitant]
     Active Substance: PITAVASTATIN CALCIUM
     Indication: BLOOD CHOLESTEROL
     Dosage: UNK, QD
     Dates: start: 20120926
  5. VITAMINS [Concomitant]
     Active Substance: VITAMINS
  6. MICARDIS HCT [Concomitant]
     Active Substance: HYDROCHLOROTHIAZIDE\TELMISARTAN
  7. DIAZEPAM. [Concomitant]
     Active Substance: DIAZEPAM
     Dosage: UNK
     Dates: start: 20120926
  8. SYNTHROID [Concomitant]
     Active Substance: LEVOTHYROXINE SODIUM

REACTIONS (13)
  - Dry mouth [Recovered/Resolved]
  - Insomnia [Recovered/Resolved]
  - Nasopharyngitis [Unknown]
  - Drug dose omission [Unknown]
  - Muscle tightness [Recovered/Resolved]
  - Blood cholesterol decreased [Unknown]
  - Fatigue [Recovered/Resolved]
  - Blood glucose increased [Not Recovered/Not Resolved]
  - Memory impairment [Recovered/Resolved]
  - Sensation of foreign body [Recovered/Resolved]
  - Decreased appetite [Recovered/Resolved]
  - Neck pain [Recovered/Resolved]
  - Constipation [Recovered/Resolved]

NARRATIVE: CASE EVENT DATE: 201210
